FAERS Safety Report 9281235 (Version 2)
Quarter: 2013Q3

REPORT INFORMATION
  Report Type: Spontaneous
  Country: BE (occurrence: BE)
  Receive Date: 20130509
  Receipt Date: 20130719
  Transmission Date: 20140515
  Serious: Yes (Hospitalization, Other)
  Sender: FDA-Public Use
  Company Number: BE-ASTRAZENECA-2013SE31315

PATIENT
  Age: 21302 Day
  Sex: Male
  Weight: 104 kg

DRUGS (6)
  1. NOLVADEX D [Suspect]
     Indication: BREAST CANCER MALE
     Route: 048
     Dates: start: 200506, end: 20070503
  2. ZOLADEX LA [Suspect]
     Indication: BREAST CANCER MALE
     Route: 058
     Dates: start: 200705
  3. ARIMIDEX [Suspect]
     Indication: BREAST CANCER MALE
     Route: 048
     Dates: start: 201007
  4. MARCOUMAR [Concomitant]
     Dates: start: 20070506, end: 20071129
  5. TAXOTERE [Concomitant]
     Dosage: EVERY THREE WEEKS
     Dates: start: 20100316, end: 20100706
  6. CYCLOPHOSPHAMIDE [Concomitant]
     Dosage: EVERY THREE WEEKS
     Dates: start: 20100316, end: 20100706

REACTIONS (3)
  - Pulmonary embolism [Recovered/Resolved]
  - Breast cancer recurrent [Unknown]
  - Off label use [Unknown]
